FAERS Safety Report 6573755-8 (Version None)
Quarter: 2010Q1

REPORT INFORMATION
  Report Type: 
  Country: None (occurrence: None)
  Receive Date: 20100208
  Receipt Date: 20100202
  Transmission Date: 20100710
  Serious: Yes (Life-Threatening)
  Sender: FDA-Public Use
  Company Number: B0630503A

PATIENT
  Age: 25 Year
  Sex: Male

DRUGS (5)
  1. CEFUROXIME [Suspect]
     Indication: PROPHYLAXIS
     Route: 042
     Dates: start: 20100125, end: 20100126
  2. LEVETIRACETAM [Concomitant]
  3. TOPIRAMATE [Concomitant]
  4. CLOBAZAM [Concomitant]
  5. PARACETAMOL [Concomitant]

REACTIONS (3)
  - DRUG HYPERSENSITIVITY [None]
  - LIP SWELLING [None]
  - SWOLLEN TONGUE [None]
